FAERS Safety Report 5508664-6 (Version None)
Quarter: 2007Q4

REPORT INFORMATION
  Report Type: 
  Country: None (occurrence: None)
  Receive Date: 20071107
  Receipt Date: 20071029
  Transmission Date: 20080405
  Serious: Yes (Other)
  Sender: FDA-Public Use
  Company Number: US-AMGEN-QUU242651

PATIENT
  Sex: Female

DRUGS (17)
  1. ENBREL [Suspect]
     Indication: PSORIATIC ARTHROPATHY
     Route: 058
     Dates: start: 20061101
  2. ENBREL [Suspect]
     Indication: PSORIASIS
  3. DYAZIDE [Concomitant]
     Route: 048
  4. ADVAIR DISKUS 100/50 [Concomitant]
     Route: 055
  5. PREMARIN [Concomitant]
     Route: 048
  6. METRONIDAZOLE [Concomitant]
     Route: 067
  7. DOXYCYCLINE [Concomitant]
     Route: 048
  8. BECONASE AQUA [Concomitant]
     Route: 045
  9. HUMIRA [Concomitant]
     Route: 058
  10. PROVERA [Concomitant]
     Route: 048
  11. FOLIC ACID [Concomitant]
     Route: 048
  12. PRILOSEC [Concomitant]
     Route: 048
  13. RANITIDINE HYDROCHLORIDE [Concomitant]
     Route: 048
  14. CLOBETASOL PROPIONATE [Concomitant]
     Route: 061
  15. DOVONEX [Concomitant]
     Route: 061
  16. LIDEX [Concomitant]
     Route: 061
  17. FLONASE [Concomitant]
     Route: 045

REACTIONS (5)
  - ANXIETY [None]
  - CHEST DISCOMFORT [None]
  - HEART RATE INCREASED [None]
  - HYPERTENSION [None]
  - PALPITATIONS [None]
